FAERS Safety Report 9721556 (Version 1)
Quarter: 2013Q4

REPORT INFORMATION
  Report Type: Spontaneous
  Country: US (occurrence: US)
  Receive Date: 20131130
  Receipt Date: 20131130
  Transmission Date: 20140711
  Serious: Yes (Other)
  Sender: FDA-Public Use
  Company Number: PHHY2013US138098

PATIENT
  Age: 78 Year
  Sex: Male

DRUGS (6)
  1. AMLODIPINE [Suspect]
     Indication: HYPERTENSION
     Dosage: 10 MG, DAILY
  2. SPIRONOLACTONE [Suspect]
     Indication: HYPERTENSION
     Dosage: 50 MG, DAILY
  3. LISINOPRIL [Suspect]
     Indication: HYPERTENSION
     Dosage: 40 MG, DAILY
  4. METOPROLOL [Suspect]
     Indication: HYPERTENSION
     Dosage: 200 MG, DAILY
  5. CLONIDINE [Suspect]
     Indication: HYPERTENSION
  6. HYDRALAZINE [Suspect]
     Indication: HYPERTENSION

REACTIONS (4)
  - Hypertension [Unknown]
  - Drug intolerance [Unknown]
  - Dry mouth [Unknown]
  - Diarrhoea [Unknown]
